FAERS Safety Report 5253869-5 (Version None)
Quarter: 2007Q1

REPORT INFORMATION
  Report Type: 
  Country: None (occurrence: None)
  Receive Date: 20070227
  Receipt Date: 20070221
  Transmission Date: 20070707
  Serious: Yes (Hospitalization)
  Sender: FDA-Public Use
  Company Number: 153169USA

PATIENT
  Age: 82 Year
  Sex: Female

DRUGS (5)
  1. HYDROCHLOROTHIAZIDE [Suspect]
  2. VALSARTAN [Suspect]
  3. AMLODIPINE [Suspect]
  4. BACTRIM [Concomitant]
  5. LISINOPRIL [Concomitant]

REACTIONS (2)
  - ANGIOEDEMA [None]
  - GOUT [None]
